FAERS Safety Report 5867337-0 (Version None)
Quarter: 2008Q3

REPORT INFORMATION
  Report Type: 
  Country: None (occurrence: None)
  Receive Date: 20080902
  Receipt Date: 20080822
  Transmission Date: 20090109
  Serious: Yes (Other)
  Sender: FDA-Public Use
  Company Number: PHBS2008US05503

PATIENT
  Age: 25 Year
  Sex: Female

DRUGS (9)
  1. GLEEVEC [Suspect]
     Indication: GASTROINTESTINAL STROMAL TUMOUR
  2. OXYTOCIN [Suspect]
  3. VITAMIN TAB [Concomitant]
  4. IRON [Concomitant]
  5. PROMETHAZINE [Concomitant]
     Dosage: 12.5 MG, UNK
  6. MIDAZOLAM HCL [Concomitant]
     Dosage: 0.5 MG, UNK
  7. BUPIVACAINE [Concomitant]
     Dosage: 11.25 MG, UNK
     Route: 037
  8. FENTANYL-25 [Concomitant]
     Dosage: 25 UG, UNK
  9. MORPHINE [Concomitant]
     Dosage: 200 UG, UNK

REACTIONS (13)
  - BACK PAIN [None]
  - CAESAREAN SECTION [None]
  - CARDIAC OUTPUT INCREASED [None]
  - DRUG EXPOSURE DURING PREGNANCY [None]
  - DYSPNOEA [None]
  - FEMALE STERILISATION [None]
  - GASTROINTESTINAL DISORDER [None]
  - GASTROINTESTINAL STROMAL TUMOUR [None]
  - HEART RATE INCREASED [None]
  - MEAN ARTERIAL PRESSURE DECREASED [None]
  - NORMAL NEWBORN [None]
  - STROKE VOLUME INCREASED [None]
  - VASCULAR RESISTANCE SYSTEMIC DECREASED [None]
